FAERS Safety Report 7492088 (Version 4)
Quarter: 2013Q1

REPORT INFORMATION
  Report Type: Spontaneous
  Country: US (occurrence: US)
  Receive Date: 20100721
  Receipt Date: 20130301
  Transmission Date: 20140127
  Serious: Yes (Death, Hospitalization)
  Sender: FDA-Public Use
  Company Number: US-JNJFOC-20100705041

PATIENT
  Sex: Male
  Weight: 117.99 kg

DRUGS (29)
  1. LEVAQUIN [Suspect]
     Indication: MALAISE
     Route: 042
  2. LEVAQUIN [Suspect]
     Indication: PYREXIA
     Route: 042
  3. LEVAQUIN [Suspect]
     Indication: HEPATIC CANCER
     Route: 042
  4. LEVAQUIN [Suspect]
     Indication: CELLULITIS
     Route: 042
  5. ETHANOL [Suspect]
     Indication: PRODUCT USED FOR UNKNOWN INDICATION
     Route: 048
  6. FLAGYL [Suspect]
     Indication: PYREXIA
     Route: 065
  7. FLAGYL [Suspect]
     Indication: MALAISE
     Route: 065
  8. CALCIUM CARBONATE [Concomitant]
     Indication: PRODUCT USED FOR UNKNOWN INDICATION
     Route: 048
  9. LASIX [Concomitant]
     Indication: PRODUCT USED FOR UNKNOWN INDICATION
     Route: 048
  10. LASIX [Concomitant]
     Indication: PRODUCT USED FOR UNKNOWN INDICATION
     Route: 048
     Dates: end: 20090922
  11. NADOLOL [Concomitant]
     Indication: PRODUCT USED FOR UNKNOWN INDICATION
     Route: 048
  12. LACTULOSE [Concomitant]
     Indication: PRODUCT USED FOR UNKNOWN INDICATION
     Route: 048
  13. PRILOSEC [Concomitant]
     Indication: PRODUCT USED FOR UNKNOWN INDICATION
     Route: 048
  14. PRILOSEC [Concomitant]
     Indication: PRODUCT USED FOR UNKNOWN INDICATION
     Route: 048
     Dates: end: 20090922
  15. OXYCODONE [Concomitant]
     Indication: PAIN
     Route: 048
  16. CEFPODOXIME PROXETIL [Concomitant]
     Indication: PRODUCT USED FOR UNKNOWN INDICATION
     Route: 048
  17. MOTRIN [Concomitant]
     Indication: PAIN
     Route: 048
  18. TRICOR [Concomitant]
     Indication: PRODUCT USED FOR UNKNOWN INDICATION
     Route: 048
     Dates: end: 20090922
  19. LISINOPRIL [Concomitant]
     Indication: PRODUCT USED FOR UNKNOWN INDICATION
     Route: 065
     Dates: end: 20090922
  20. METFORMIN [Concomitant]
     Indication: PRODUCT USED FOR UNKNOWN INDICATION
     Route: 065
  21. METFORMIN [Concomitant]
     Indication: PRODUCT USED FOR UNKNOWN INDICATION
     Dosage: WITH AM DOSE
     Route: 065
     Dates: start: 20090924
  22. METOPROLOL SUCCINATE [Concomitant]
     Indication: PRODUCT USED FOR UNKNOWN INDICATION
     Dosage: BEFORE BREAKFAST AND BEFORE SUPPER, EXTENDED RELEASE
     Route: 048
  23. COUMADIN [Concomitant]
     Indication: ATRIAL FIBRILLATION
     Dosage: 2.5 MG- SUNDAY, TUESDAY, WEDNESDAY, THURSDAY, SATURDAY; 5 MG- FRIDAY, MONDAY
     Route: 048
  24. KCL [Concomitant]
     Indication: PRODUCT USED FOR UNKNOWN INDICATION
     Dosage: 20 MEQ- SLOW RELEASE TABLET
     Route: 048
     Dates: end: 20090922
  25. FLU VACCINE [Concomitant]
     Indication: INFLUENZA
  26. AMIODARONE [Concomitant]
     Indication: PRODUCT USED FOR UNKNOWN INDICATION
     Route: 048
  27. LORAZEPAM [Concomitant]
     Dosage: 1 TABLET AN HOUR BEFORE PROCEDURE. TAKE A SECOND TABLET IF REQUIRED.
     Route: 048
  28. DOXYCYCLINE [Concomitant]
     Indication: PRODUCT USED FOR UNKNOWN INDICATION
     Route: 048
  29. CLINDAMYCIN [Concomitant]
     Indication: PRODUCT USED FOR UNKNOWN INDICATION
     Route: 048

REACTIONS (3)
  - Hepatocellular carcinoma [Fatal]
  - Tendon rupture [Not Recovered/Not Resolved]
  - Hepatic failure [Fatal]
